FAERS Safety Report 25920221 (Version 2)
Quarter: 2025Q4

REPORT INFORMATION
  Report Type: Report from Study
  Country: AU (occurrence: AU)
  Receive Date: 20251014
  Receipt Date: 20251121
  Transmission Date: 20260117
  Serious: Yes (Congenital Anomaly, Other)
  Sender: ROCHE
  Company Number: AU-002147023-NVSC2025AU155651

PATIENT
  Age: 11 Month
  Sex: Male
  Weight: 2.9 kg

DRUGS (3)
  1. OMALIZUMAB [Suspect]
     Active Substance: OMALIZUMAB
     Indication: Product used for unknown indication
     Dosage: UNK (MOTHER TOOK OMALIZUMAB 300 MG MONTHLY FROM AUG 2022 TO MAR 2024, FROM UNKNOWN DATE TO APR 2024
     Route: 064
  2. PRISTIQ EXTENDED-RELEASE [Concomitant]
     Active Substance: DESVENLAFAXINE SUCCINATE
     Indication: Product used for unknown indication
     Dosage: UNK, QD (THROUGHOUT PREGNANCY)
     Route: 064
  3. PANTOPRAZOLE [Concomitant]
     Active Substance: PANTOPRAZOLE
     Indication: Product used for unknown indication
     Dosage: UNK, QD (MID-PREGNANCY DURING 2ND AND 3RD TRIMESTER)
     Route: 064

REACTIONS (7)
  - Harlequin foetus [Recovered/Resolved]
  - Bicuspid aortic valve [Unknown]
  - Gene mutation [Unknown]
  - Deafness [Unknown]
  - Tachypnoea [Unknown]
  - Dairy intolerance [Unknown]
  - Foetal exposure during pregnancy [Unknown]
